FAERS Safety Report 9699951 (Version 1)
Quarter: 2013Q4

REPORT INFORMATION
  Report Type: Spontaneous
  Country: IT (occurrence: IT)
  Receive Date: 20131121
  Receipt Date: 20131121
  Transmission Date: 20140711
  Serious: Yes (Disabling, Other)
  Sender: FDA-Public Use
  Company Number: IT-009507513-1311ITA006317

PATIENT
  Age: 83 Year
  Sex: Female

DRUGS (9)
  1. FOSAVANCE [Suspect]
     Indication: OSTEOPOROSIS
     Dosage: 1 DF, QW
     Route: 048
     Dates: start: 20070101, end: 20130501
  2. CITALOPRAM [Concomitant]
  3. SERENASE [Concomitant]
     Dosage: UNK, PRN
  4. SPIRIVA [Concomitant]
  5. TALOFEN [Concomitant]
  6. FORADIL [Concomitant]
  7. DEPAKINE CHRONO [Concomitant]
  8. EXELON (RIVASTIGMINE) [Concomitant]
  9. ENTUMINE [Concomitant]
     Dosage: UNK, PRN

REACTIONS (1)
  - Osteonecrosis [Not Recovered/Not Resolved]
